FAERS Safety Report 5920374-X (Version None)
Quarter: 2008Q4

REPORT INFORMATION
  Report Type: 
  Country: None (occurrence: None)
  Receive Date: 20081016
  Receipt Date: 20081008
  Transmission Date: 20090506
  Serious: Yes (Hospitalization)
  Sender: FDA-Public Use
  Company Number: PHHY2008JP24328

PATIENT
  Age: 71 Year
  Sex: Female

DRUGS (3)
  1. VOLTAREN [Suspect]
     Indication: RHEUMATOID ARTHRITIS
     Dosage: UNK
     Route: 054
  2. PREDONINE [Concomitant]
     Indication: RHEUMATOID ARTHRITIS
     Dosage: 2 MG, UNK
  3. RHEUMATREX [Concomitant]
     Indication: RHEUMATOID ARTHRITIS
     Dosage: 12 MG, UNK

REACTIONS (2)
  - FEMALE GENITAL TRACT FISTULA [None]
  - RECTAL STENOSIS [None]
